FAERS Safety Report 16117515 (Version 4)
Quarter: 2019Q2

REPORT INFORMATION
  Report Type: Report from Study
  Country: US (occurrence: US)
  Receive Date: 20190326
  Receipt Date: 20190508
  Transmission Date: 20190711
  Serious: Yes (Hospitalization, Other)
  Sender: FDA-Public Use
  Company Number: PHEH2019US012307

PATIENT
  Sex: Female

DRUGS (1)
  1. GILENYA [Suspect]
     Active Substance: FINGOLIMOD HYDROCHLORIDE
     Indication: MULTIPLE SCLEROSIS
     Dosage: 0.5 MG, QD
     Route: 048
     Dates: start: 20181218, end: 201904

REACTIONS (18)
  - Gait disturbance [Unknown]
  - Urticaria [Unknown]
  - White blood cell count decreased [Unknown]
  - Liver function test increased [Not Recovered/Not Resolved]
  - Drug ineffective [Unknown]
  - Chromaturia [Unknown]
  - Blood pressure increased [Unknown]
  - Swollen tongue [Recovering/Resolving]
  - Speech disorder [Unknown]
  - Urine odour abnormal [Unknown]
  - Systemic lupus erythematosus [Unknown]
  - Rash erythematous [Not Recovered/Not Resolved]
  - Stomatitis [Unknown]
  - Cerebrovascular accident [Unknown]
  - Seizure [Not Recovered/Not Resolved]
  - Blood thyroid stimulating hormone increased [Unknown]
  - Peripheral swelling [Recovering/Resolving]
  - Nasopharyngitis [Unknown]
